FAERS Safety Report 5225752-2 (Version None)
Quarter: 2007Q1

REPORT INFORMATION
  Report Type: 
  Country: None (occurrence: None)
  Receive Date: 20070201
  Receipt Date: 20070124
  Transmission Date: 20070707
  Serious: Yes (Other)
  Sender: FDA-Public Use
  Company Number: US-RB-004844-07

PATIENT
  Sex: Female
  Weight: 63.45 kg

DRUGS (4)
  1. SUBUTEX [Suspect]
     Dosage: PATIENT IS TAKING 4-6MG DAILY BASED ON HOW SHE FEELS.
     Route: 060
     Dates: start: 20051101, end: 20061101
  2. SUBUTEX [Suspect]
     Dosage: PATIENT TAKES 8-12MG DAILY BASED ON HOW SHE FEELS.
     Route: 060
     Dates: start: 20061101
  3. SUBOXONE [Suspect]
     Dosage: PATIENT TAKES 4-6MG DAILY BASED ON HOW SHE FEELS.
     Route: 060
     Dates: start: 20050801, end: 20051101
  4. PRENATAL VITAMINS [Concomitant]
     Indication: PREGNANCY
     Route: 048
     Dates: start: 20051101, end: 20060101

REACTIONS (4)
  - ABORTION INDUCED [None]
  - DRUG EXPOSURE DURING PREGNANCY [None]
  - TRISOMY 21 [None]
  - VAGINAL HAEMORRHAGE [None]
